FAERS Safety Report 5347892-X (Version None)
Quarter: 2007Q2

REPORT INFORMATION
  Report Type: 
  Country: None (occurrence: None)
  Receive Date: 20070516
  Receipt Date: 20060718
  Transmission Date: 20071010
  Serious: Yes (Other)
  Sender: FDA-Public Use
  Company Number: 06-000700

PATIENT
  Sex: Female

DRUGS (7)
  1. FEMRING [Suspect]
     Indication: HORMONE REPLACEMENT THERAPY
  2. ESTROGENS SOL/INJ [Suspect]
     Indication: HORMONE REPLACEMENT THERAPY
  3. CENESTIN [Suspect]
     Indication: HORMONE REPLACEMENT THERAPY
  4. PROMETRIUM [Suspect]
     Indication: HORMONE REPLACEMENT THERAPY
  5. ESTRING [Suspect]
     Indication: HORMONE REPLACEMENT THERAPY
  6. VAGIFEM [Suspect]
     Indication: HORMONE REPLACEMENT THERAPY
  7. MENEST [Suspect]
     Indication: HORMONE REPLACEMENT THERAPY

REACTIONS (1)
  - BREAST CANCER [None]
